FAERS Safety Report 10917406 (Version 1)
Quarter: 2015Q1

REPORT INFORMATION
  Report Type: Spontaneous
  Country: US (occurrence: US)
  Receive Date: 20150316
  Receipt Date: 20150316
  Transmission Date: 20150721
  Serious: Yes (Death, Other)
  Sender: FDA-Public Use
  Company Number: PHHY2015US027862

PATIENT
  Age: 29 Year
  Sex: Female

DRUGS (5)
  1. PREDNISONE. [Suspect]
     Active Substance: PREDNISONE
     Indication: PRODUCT USED FOR UNKNOWN INDICATION
     Route: 065
  2. IVERMECTIN. [Suspect]
     Active Substance: IVERMECTIN
     Indication: DRUG REACTION WITH EOSINOPHILIA AND SYSTEMIC SYMPTOMS
     Route: 065
  3. IVERMECTIN. [Suspect]
     Active Substance: IVERMECTIN
     Indication: EOSINOPHILIA
  4. METHYLPREDNISOLONE. [Suspect]
     Active Substance: METHYLPREDNISOLONE
     Indication: DRUG REACTION WITH EOSINOPHILIA AND SYSTEMIC SYMPTOMS
     Route: 065
  5. METHYLPREDNISOLONE. [Suspect]
     Active Substance: METHYLPREDNISOLONE
     Indication: EOSINOPHILIA

REACTIONS (10)
  - Lymphadenopathy [Fatal]
  - Hepatic function abnormal [Fatal]
  - Stevens-Johnson syndrome [Fatal]
  - Drug reaction with eosinophilia and systemic symptoms [Fatal]
  - Rash maculo-papular [Unknown]
  - Strongyloidiasis [Unknown]
  - Pseudomonal sepsis [Fatal]
  - Toxic epidermal necrolysis [Fatal]
  - Exfoliative rash [Fatal]
  - Eosinophilia [Fatal]
